FAERS Safety Report 6535820-0 (Version None)
Quarter: 2010Q1

REPORT INFORMATION
  Report Type: 
  Country: None (occurrence: None)
  Receive Date: 20100106
  Receipt Date: 20091229
  Transmission Date: 20100710
  Serious: Yes (Life-Threatening, Hospitalization)
  Sender: FDA-Public Use
  Company Number: 462872

PATIENT
  Age: 43 Year
  Sex: Female

DRUGS (2)
  1. DIAZEPAM [Suspect]
     Indication: CONVULSION
     Dates: start: 20091112, end: 20091112
  2. REBIF [Suspect]
     Indication: MULTIPLE SCLEROSIS
     Dosage: 44 MCG, 3 IN 1 WEEK

REACTIONS (5)
  - DEHYDRATION [None]
  - NO THERAPEUTIC RESPONSE [None]
  - RESPIRATORY ARREST [None]
  - SEPSIS [None]
  - URINARY TRACT INFECTION [None]
